FAERS Safety Report 9440786 (Version 2)
Quarter: 2013Q3

REPORT INFORMATION
  Report Type: Spontaneous
  Country: US (occurrence: US)
  Receive Date: 20130805
  Receipt Date: 20130909
  Transmission Date: 20140515
  Serious: Yes (Hospitalization)
  Sender: FDA-Public Use
  Company Number: US-JNJFOC-20130718518

PATIENT
  Age: 59 Year
  Sex: Female
  Weight: 117.94 kg

DRUGS (7)
  1. REMICADE [Suspect]
     Indication: RHEUMATOID ARTHRITIS
     Dosage: OVER 2-3 HOURS
     Route: 042
     Dates: start: 20130506
  2. REMICADE [Suspect]
     Indication: RHEUMATOID ARTHRITIS
     Dosage: OVER 2-3 HOURS
     Route: 042
     Dates: start: 20130708
  3. METHOTREXATE [Concomitant]
     Indication: RHEUMATOID ARTHRITIS
     Route: 065
  4. PREDNISONE [Concomitant]
     Route: 065
  5. FOLBIC [Concomitant]
     Route: 065
  6. FLEXERIL [Concomitant]
     Route: 065
     Dates: start: 20130708
  7. VITAMIN D [Concomitant]
     Dosage: 50,000 UNITS
     Route: 065
     Dates: start: 20130708

REACTIONS (1)
  - Diplopia [Recovering/Resolving]
